FAERS Safety Report 6089521-6 (Version None)
Quarter: 2009Q1

REPORT INFORMATION
  Report Type: 
  Country: None (occurrence: None)
  Receive Date: 20090224
  Receipt Date: 20090216
  Transmission Date: 20090719
  Serious: Yes (Hospitalization, Other)
  Sender: FDA-Public Use
  Company Number: AU-ABBOTT-08P-008-0442826-00

PATIENT
  Sex: Male

DRUGS (2)
  1. KALETRA [Suspect]
     Indication: HIV INFECTION
     Route: 048
  2. TRUVADA [Concomitant]
     Indication: DRUG USE FOR UNKNOWN INDICATION

REACTIONS (8)
  - DIARRHOEA [None]
  - DRUG ERUPTION [None]
  - GASTRITIS [None]
  - HYPONATRAEMIA [None]
  - HYPOURICAEMIA [None]
  - INAPPROPRIATE ANTIDIURETIC HORMONE SECRETION [None]
  - PYREXIA [None]
  - VOMITING [None]
